FAERS Safety Report 8100644-X (Version None)
Quarter: 2012Q1

REPORT INFORMATION
  Report Type: 
  Country: None (occurrence: None)
  Receive Date: 20120131
  Receipt Date: 20120124
  Transmission Date: 20120608
  Serious: Yes (Hospitalization)
  Sender: FDA-Public Use
  Company Number: FR-PFIZER INC-2011308214

PATIENT
  Age: 14 Year
  Sex: Female
  Weight: 37 kg

DRUGS (13)
  1. ZITHROMAX [Interacting]
     Dosage: 250 MG, 3 TIMES PER WEEK
     Dates: start: 20110912
  2. MYCOPHENOLATE MOFETIL (CELLCEPT) [Concomitant]
     Indication: LUNG TRANSPLANT
     Dosage: UNK
     Dates: start: 20051020
  3. INSULIN [Concomitant]
     Dosage: UNK
  4. TACROLIMUS [Interacting]
     Indication: LUNG TRANSPLANT
     Dosage: UNK
     Dates: end: 20110914
  5. CANCIDAS [Interacting]
     Indication: ASPERGILLOSIS
     Dosage: 1 DF, 1X/DAY
     Route: 042
     Dates: start: 20110913, end: 20110922
  6. VFEND [Interacting]
     Dosage: UNK
  7. ZITHROMAX [Interacting]
     Indication: OPPORTUNISTIC INFECTION PROPHYLAXIS
     Dosage: 500 MG, ALTERNATE DAY
     Route: 048
  8. TACROLIMUS [Interacting]
     Dosage: 0.5 MG, 2X/DAY
     Route: 048
     Dates: start: 20110916
  9. RIFADIN [Interacting]
     Indication: TUBERCULOSIS
     Dosage: 600 MG, 1X/DAY
     Route: 048
     Dates: start: 20110608, end: 20111009
  10. CREON [Concomitant]
     Dosage: UNK
  11. VFEND [Suspect]
     Indication: ASPERGILLOSIS
     Dosage: 200 MG, 2X/DAY
     Route: 048
     Dates: start: 20110912, end: 20110928
  12. RIMIFON [Concomitant]
     Indication: TUBERCULOSIS
     Dosage: UNK
     Dates: start: 20110608
  13. A 313 [Concomitant]
     Dosage: UNK

REACTIONS (3)
  - RENAL FAILURE ACUTE [None]
  - DRUG INTERACTION [None]
  - DRUG LEVEL INCREASED [None]
